FAERS Safety Report 9729772 (Version 2)
Quarter: 2015Q3

REPORT INFORMATION
  Report Type: Spontaneous
  Country: US (occurrence: US)
  Receive Date: 20131204
  Receipt Date: 20150804
  Transmission Date: 20151125
  Serious: No
  Sender: FDA-Public Use
  Company Number: US-GILEAD-2009-0022399

PATIENT
  Age: 52 Year
  Sex: Female
  Weight: 75.75 kg

DRUGS (12)
  1. DILTIAZEM [Concomitant]
     Active Substance: DILTIAZEM
  2. ASPIRIN. [Concomitant]
     Active Substance: ASPIRIN
  3. REVATIO [Concomitant]
     Active Substance: SILDENAFIL CITRATE
  4. ALBUTEROL. [Concomitant]
     Active Substance: ALBUTEROL
  5. WARFARIN [Concomitant]
     Active Substance: WARFARIN
  6. FUROSEMIDE. [Concomitant]
     Active Substance: FUROSEMIDE
  7. TYLENOL W/ CODEINE #3 [Concomitant]
  8. LETAIRIS [Suspect]
     Active Substance: AMBRISENTAN
     Indication: PULMONARY ARTERIAL HYPERTENSION
     Route: 048
     Dates: start: 20090513
  9. SIMVASTATIN. [Concomitant]
     Active Substance: SIMVASTATIN
  10. DIGOXIN. [Concomitant]
     Active Substance: DIGOXIN
  11. PREDNISONE. [Concomitant]
     Active Substance: PREDNISONE
  12. KLOR-CON [Concomitant]
     Active Substance: POTASSIUM CHLORIDE

REACTIONS (3)
  - Nausea [Unknown]
  - Palpitations [Unknown]
  - Gastric disorder [Unknown]
